FAERS Safety Report 7151757-0 (Version None)
Quarter: 2010Q4

REPORT INFORMATION
  Report Type: 
  Country: None (occurrence: None)
  Receive Date: 20101123
  Receipt Date: 20101015
  Transmission Date: 20110411
  Serious: No
  Sender: FDA-Public Use
  Company Number: 020513

PATIENT
  Sex: Female
  Weight: 76.2 kg

DRUGS (3)
  1. CIMZIA [Suspect]
     Indication: CROHN'S DISEASE
     Dosage: 400 MG, INECTION DOSE SUBCUTANEOUS
     Route: 058
     Dates: start: 20101001
  2. PENTASA [Concomitant]
  3. ENTOCORT EC [Concomitant]

REACTIONS (1)
  - NASOPHARYNGITIS [None]
